FAERS Safety Report 5957669-X (Version None)
Quarter: 2008Q4

REPORT INFORMATION
  Report Type: 
  Country: None (occurrence: None)
  Receive Date: 20081119
  Receipt Date: 20081113
  Transmission Date: 20090506
  Serious: Yes (Other)
  Sender: FDA-Public Use
  Company Number: CA-JNJFOC-20081102987

PATIENT
  Sex: Male
  Weight: 31.75 kg

DRUGS (4)
  1. CONCERTA [Suspect]
     Indication: ATTENTION DEFICIT/HYPERACTIVITY DISORDER
  2. RITALIN [Concomitant]
     Dosage: IN THE MORNING
  3. SEROQUIL [Concomitant]
     Dosage: AT THE TIME OF SLEEP
  4. CLONIDINE [Concomitant]
     Dosage: AT THE TIME OF SLEEP

REACTIONS (5)
  - ANXIETY [None]
  - DEPRESSION [None]
  - MENTAL DISORDER [None]
  - MIGRAINE [None]
  - SUICIDAL IDEATION [None]
